FAERS Safety Report 9784167 (Version 1)
Quarter: 2013Q4

REPORT INFORMATION
  Report Type: Spontaneous
  Country: IN (occurrence: IN)
  Receive Date: 20131226
  Receipt Date: 20131226
  Transmission Date: 20140711
  Serious: Yes (Other)
  Sender: FDA-Public Use
  Company Number: IN-009507513-1312IND010317

PATIENT
  Age: 49 Year
  Sex: 0

DRUGS (1)
  1. JANUMET [Suspect]
     Dosage: UNK, BID
     Route: 048
     Dates: end: 2013

REACTIONS (3)
  - Hepatic cirrhosis [Unknown]
  - Liver injury [Unknown]
  - Flatulence [Unknown]
